FAERS Safety Report 5363851-5 (Version None)
Quarter: 2007Q2

REPORT INFORMATION
  Report Type: 
  Country: None (occurrence: None)
  Receive Date: 20070530
  Receipt Date: 20070102
  Transmission Date: 20071010
  Serious: No
  Sender: FDA-Public Use
  Company Number: 2007PV027717

PATIENT
  Age: 55 Year
  Sex: Female
  Weight: 84.369 kg

DRUGS (9)
  1. BYETTA [Suspect]
     Indication: DIABETES MELLITUS NON-INSULIN-DEPENDENT
     Dosage: 10 MCG; QD; SC
     Route: 058
     Dates: start: 20061201
  2. BYETTA [Suspect]
     Indication: WEIGHT DECREASED
     Dosage: 10 MCG; QD; SC
     Route: 058
     Dates: start: 20061201
  3. LANTUS [Concomitant]
  4. METFORMIN HCL [Concomitant]
  5. TOPAMAX [Concomitant]
  6. IBUPROFEN [Concomitant]
  7. PROTONIX [Concomitant]
  8. HUMALOG [Concomitant]
  9. UNSPECIFIED MEDICATIONS [Concomitant]

REACTIONS (10)
  - ABDOMINAL DISTENSION [None]
  - BLOOD GLUCOSE DECREASED [None]
  - BLOOD GLUCOSE INCREASED [None]
  - DYSPNOEA [None]
  - NAUSEA [None]
  - PRODUCTIVE COUGH [None]
  - STOMACH DISCOMFORT [None]
  - TREMOR [None]
  - VOMITING [None]
  - WEIGHT DECREASED [None]
